FAERS Safety Report 19826012 (Version 1)
Quarter: 2021Q3

REPORT INFORMATION
  Report Type: Spontaneous
  Country: US (occurrence: US)
  Receive Date: 20210914
  Receipt Date: 20210914
  Transmission Date: 20211014
  Serious: Yes (Death, Life-Threatening, Hospitalization)
  Sender: FDA-Public Use
  Company Number: None

PATIENT
  Age: 50 Year
  Sex: Female
  Weight: 89.4 kg

DRUGS (12)
  1. AJOVY [Concomitant]
     Active Substance: FREMANEZUMAB-VFRM
  2. BARICITINIB. [Suspect]
     Active Substance: BARICITINIB
     Indication: COVID-19
     Route: 048
     Dates: start: 20210830, end: 20210904
  3. BARICITINIB. [Concomitant]
     Active Substance: BARICITINIB
     Dates: start: 20210831, end: 20210904
  4. CASIRIVIMAB/IMDEVIMAB [Suspect]
     Active Substance: CASIRIVIMAB\IMDEVIMAB
     Indication: COVID-19
     Dosage: ?          OTHER FREQUENCY:1X ONLY;?
     Route: 042
     Dates: start: 20210830, end: 20210830
  5. REGEN?COV [Concomitant]
     Active Substance: CASIRIVIMAB\IMDEVIMAB
     Dates: start: 20210830, end: 20210830
  6. ALBUTEROL INH [Concomitant]
     Active Substance: ALBUTEROL
     Dates: start: 20210826, end: 20210830
  7. LEVOTHROXINE [Concomitant]
     Active Substance: LEVOTHYROXINE
  8. LIDOCAINE?ALUMINUM?MAG OH?SIMETHICONE?DIPHENHYDRAMINE [Concomitant]
     Dates: start: 20210826, end: 20210830
  9. CHOLECALCIFEROL [Concomitant]
     Active Substance: CHOLECALCIFEROL
  10. CLONAZEPAM. [Concomitant]
     Active Substance: CLONAZEPAM
  11. VYVANSE [Concomitant]
     Active Substance: LISDEXAMFETAMINE DIMESYLATE
  12. SIMVASTATIN. [Concomitant]
     Active Substance: SIMVASTATIN

REACTIONS (10)
  - Staphylococcal bacteraemia [None]
  - Leukocytosis [None]
  - Hypotension [None]
  - Oxygen saturation decreased [None]
  - Bradycardia [None]
  - Urinary tract infection staphylococcal [None]
  - Septic shock [None]
  - Renal impairment [None]
  - Pulseless electrical activity [None]
  - Escherichia urinary tract infection [None]

NARRATIVE: CASE EVENT DATE: 20210830
